FAERS Safety Report 7898399-7 (Version None)
Quarter: 2011Q4

REPORT INFORMATION
  Report Type: 
  Country: None (occurrence: None)
  Receive Date: 20111103
  Receipt Date: 20111021
  Transmission Date: 20120403
  Serious: Yes (Hospitalization)
  Sender: FDA-Public Use
  Company Number: JP-2011-11561

PATIENT
  Age: 66 Year
  Sex: Male
  Weight: 51 kg

DRUGS (2)
  1. AROFUTO (AFLOQUALONE) TABLET [Suspect]
     Indication: MYALGIA
     Dosage: 20 MG MILLIGRAM(S), TID, ORAL
     Route: 048
     Dates: start: 20110328, end: 20110925
  2. PLETAL [Suspect]
     Indication: CEREBRAL INFARCTION
     Dosage: 100 MG MILLIGRAM(S), BID, ORAL
     Route: 048
     Dates: start: 20110328, end: 20110915

REACTIONS (4)
  - DRUG EFFECT DECREASED [None]
  - ORGANISING PNEUMONIA [None]
  - OBLITERATIVE BRONCHIOLITIS [None]
  - EOSINOPHILIC PNEUMONIA [None]
